FAERS Safety Report 8068624-0 (Version None)
Quarter: 2012Q1

REPORT INFORMATION
  Report Type: 
  Country: None (occurrence: None)
  Receive Date: 20120124
  Receipt Date: 20111115
  Transmission Date: 20120608
  Serious: Yes (Other)
  Sender: FDA-Public Use
  Company Number: US-AMGEN-USASP2011060511

PATIENT
  Sex: Female

DRUGS (2)
  1. DENOSUMAB [Suspect]
     Route: 064
  2. DENOSUMAB [Suspect]
     Route: 064

REACTIONS (1)
  - GASTROOESOPHAGEAL REFLUX DISEASE [None]
